FAERS Safety Report 7801905-1 (Version None)
Quarter: 2011Q4

REPORT INFORMATION
  Report Type: 
  Country: None (occurrence: None)
  Receive Date: 20111007
  Receipt Date: 20111004
  Transmission Date: 20120403
  Serious: Yes (Hospitalization)
  Sender: FDA-Public Use
  Company Number: FI-PFIZER INC-2011203633

PATIENT
  Age: 50 Year
  Sex: Female

DRUGS (3)
  1. LYRICA [Suspect]
     Indication: PAIN
  2. VALPROATE SODIUM [Concomitant]
     Indication: AFFECTIVE DISORDER
  3. LYRICA [Suspect]
     Indication: ANXIETY DISORDER
     Dosage: UNK
     Route: 048

REACTIONS (2)
  - AFFECTIVE DISORDER [None]
  - DRUG DEPENDENCE [None]
